FAERS Safety Report 23898447 (Version 2)
Quarter: 2024Q3

REPORT INFORMATION
  Report Type: Spontaneous
  Country: US (occurrence: US)
  Receive Date: 20240525
  Receipt Date: 20240819
  Transmission Date: 20241017
  Serious: No
  Sender: BIOCON
  Company Number: US-MIMS-BCONMC-3651

PATIENT

DRUGS (1)
  1. INSULIN GLARGINE [Suspect]
     Active Substance: INSULIN GLARGINE
     Indication: Type 2 diabetes mellitus
     Dosage: 26 UNITS/ML QD
     Route: 058
     Dates: start: 20240207

REACTIONS (2)
  - Maternal exposure during pregnancy [Unknown]
  - Device breakage [Unknown]

NARRATIVE: CASE EVENT DATE: 20240304
